FAERS Safety Report 23576138 (Version 1)
Quarter: 2024Q1

REPORT INFORMATION
  Report Type: Spontaneous
  Country: US (occurrence: US)
  Receive Date: 20240228
  Receipt Date: 20240228
  Transmission Date: 20240410
  Serious: Yes (Other)
  Sender: FDA-Public Use
  Company Number: US-ELI_LILLY_AND_COMPANY-US202402012180

PATIENT
  Age: 71 Year
  Sex: Male

DRUGS (1)
  1. JAYPIRCA [Suspect]
     Active Substance: PIRTOBRUTINIB
     Indication: Mantle cell lymphoma
     Dosage: 200 MG, UNKNOWN
     Route: 065
     Dates: start: 20240212, end: 20240216

REACTIONS (3)
  - Hepatic failure [Not Recovered/Not Resolved]
  - Renal disorder [Not Recovered/Not Resolved]
  - Mental status changes [Not Recovered/Not Resolved]
